FAERS Safety Report 22319854 (Version 2)
Quarter: 2023Q2

REPORT INFORMATION
  Report Type: Report from Study
  Country: FR (occurrence: FR)
  Receive Date: 20230515
  Receipt Date: 20230619
  Transmission Date: 20230722
  Serious: Yes (Hospitalization)
  Sender: FDA-Public Use
  Company Number: FR-TAKEDA-FR201819637

PATIENT
  Age: 41 Year
  Sex: Male
  Weight: 102 kg

DRUGS (12)
  1. TEDUGLUTIDE [Suspect]
     Active Substance: TEDUGLUTIDE
     Indication: Short-bowel syndrome
     Dosage: 4.8 MILLIGRAM, QD
     Route: 042
     Dates: start: 20170228
  2. TEDUGLUTIDE [Suspect]
     Active Substance: TEDUGLUTIDE
     Indication: Short-bowel syndrome
     Dosage: 4.8 MILLIGRAM, QD
     Route: 042
     Dates: start: 20170228
  3. TEDUGLUTIDE [Suspect]
     Active Substance: TEDUGLUTIDE
     Indication: Short-bowel syndrome
     Dosage: 4.8 MILLIGRAM, QD
     Route: 042
     Dates: start: 20170228
  4. TEDUGLUTIDE [Suspect]
     Active Substance: TEDUGLUTIDE
     Indication: Short-bowel syndrome
     Dosage: 4.8 MILLIGRAM, QD
     Route: 042
     Dates: start: 20170228
  5. PANTOPRAZOLE [Concomitant]
     Active Substance: PANTOPRAZOLE
     Indication: Short-bowel syndrome
     Route: 065
  6. PREVISCAN [Concomitant]
     Indication: Coagulopathy
     Route: 065
  7. CHOLECALCIFEROL [Concomitant]
     Active Substance: CHOLECALCIFEROL
     Route: 065
  8. BISOPROLOL [Concomitant]
     Active Substance: BISOPROLOL
     Route: 065
  9. CALCIUM CARBONATE;CITRIC ACID [Concomitant]
     Indication: Prophylaxis
     Dosage: 500 MILLIGRAM, TID
     Route: 048
     Dates: start: 201903
  10. FLAGYL [Concomitant]
     Active Substance: METRONIDAZOLE\METRONIDAZOLE HYDROCHLORIDE
     Indication: Prophylaxis
     Dosage: 250 MILLIGRAM, QD
     Route: 048
     Dates: start: 2012, end: 2020
  11. Covid-19 vaccine [Concomitant]
     Indication: COVID-19 prophylaxis
     Dosage: 1 DOSAGE FORM, SINGLE
     Route: 058
     Dates: start: 202112, end: 202112
  12. CEFEPIME [Concomitant]
     Active Substance: CEFEPIME HYDROCHLORIDE
     Indication: Vascular device infection
     Dosage: UNK UNK, QD
     Route: 042
     Dates: start: 20221214, end: 20221230

REACTIONS (1)
  - Peripheral ischaemia [Recovered/Resolved]

NARRATIVE: CASE EVENT DATE: 20171128
